FAERS Safety Report 8028484 (Version 2)
Quarter: 2012Q4

REPORT INFORMATION
  Report Type: 
  Country: GB (occurrence: GB)
  Receive Date: 20110711
  Receipt Date: 20121024
  Transmission Date: 20130627
  Serious: Yes (Death, Other)
  Sender: FDA-Public Use
  Company Number: GB-ROCHE-537549

PATIENT

DRUGS (2)
  1. CAPECITABINE [Suspect]
     Indication: COLORECTAL CANCER
     Dosage: DAYS 1-14 EVERY 3 WEEK CYCLE.
     Route: 048
  2. OXALIPLATIN [Suspect]
     Indication: COLORECTAL CANCER
     Dosage: OVER 2 HOURS GIVEN ON DAY 1 EVERY 3 WEEK CYCLE.
     Route: 042

REACTIONS (19)
  - Death [Fatal]
  - Neutropenia [Unknown]
  - Nausea [Unknown]
  - Vomiting [Unknown]
  - Diarrhoea [Unknown]
  - Rash [Unknown]
  - Hypersensitivity [Unknown]
  - Lethargy [Unknown]
  - Vein pain [Unknown]
  - Stomatitis [Unknown]
  - Pain [Unknown]
  - Alopecia [Unknown]
  - Decreased appetite [Unknown]
  - Neuropathy peripheral [Unknown]
  - Palmar-plantar erythrodysaesthesia syndrome [Unknown]
  - Anaemia [Unknown]
  - Platelet count decreased [Unknown]
  - White blood cell count decreased [Unknown]
  - Mucosal inflammation [Unknown]
